FAERS Safety Report 7827923-5 (Version None)
Quarter: 2011Q4

REPORT INFORMATION
  Report Type: 
  Country: None (occurrence: None)
  Receive Date: 20111020
  Receipt Date: 20111006
  Transmission Date: 20120403
  Serious: Yes (Hospitalization)
  Sender: FDA-Public Use
  Company Number: TW-CELGENEUS-153-CCAZA-11100654

PATIENT
  Sex: Male
  Weight: 75.9 kg

DRUGS (4)
  1. AZACITIDINE [Suspect]
     Indication: MYELODYSPLASTIC SYNDROME
     Dosage: 138 MILLIGRAM/SQ. METER
     Route: 058
     Dates: start: 20110725, end: 20110731
  2. AZACITIDINE [Suspect]
     Dosage: 138 MILLIGRAM/SQ. METER
     Route: 058
     Dates: start: 20110920, end: 20110926
  3. LACTULOSE [Concomitant]
     Indication: CONSTIPATION
     Dosage: 10 MILLILITER
     Route: 048
     Dates: start: 20111004
  4. ACETYLCYSTEINE [Concomitant]
     Dosage: 600 MILLILITER
     Route: 048
     Dates: start: 20111004

REACTIONS (4)
  - PYREXIA [None]
  - JAUNDICE [None]
  - FEBRILE NEUTROPENIA [None]
  - LUNG INFECTION [None]
